FAERS Safety Report 16920026 (Version 1)
Quarter: 2019Q4

REPORT INFORMATION
  Report Type: Spontaneous
  Country: US (occurrence: US)
  Receive Date: 20191015
  Receipt Date: 20191015
  Transmission Date: 20200122
  Serious: Yes (Hospitalization)
  Sender: FDA-Public Use
  Company Number: None

PATIENT
  Age: 67 Year
  Sex: Female

DRUGS (10)
  1. XELJANZ XR [Suspect]
     Active Substance: TOFACITINIB CITRATE
     Indication: POST PROCEDURAL COMPLICATION
     Route: 048
     Dates: start: 20190130
  2. MULTI-VITAMIN [Concomitant]
     Active Substance: .ALPHA.-TOCOPHEROL ACETATE, DL-\ASCORBIC ACID\CYANOCOBALAMIN\FLUORIDE ION\FOLIC ACID\NIACIN\PYRIDOXINE\RIBOFLAVIN\THIAMINE\VITAMIN A\VITAMIN D
     Dates: start: 19000101
  3. ORENCIA [Concomitant]
     Active Substance: ABATACEPT
     Dates: start: 19000101
  4. HYDROCHLOROT [Concomitant]
     Active Substance: HYDROCHLOROTHIAZIDE
     Dates: start: 19000101
  5. LEXAPRO [Concomitant]
     Active Substance: ESCITALOPRAM OXALATE
     Dates: start: 19000101
  6. METHOTREXATE. [Concomitant]
     Active Substance: METHOTREXATE
     Dates: start: 19000101
  7. AVAPRO [Concomitant]
     Active Substance: IRBESARTAN
     Dates: start: 19000101
  8. MAGNESIUM [Concomitant]
     Active Substance: MAGNESIUM
     Dates: start: 19000101
  9. CALCIUM [Concomitant]
     Active Substance: CALCIUM
     Dates: start: 19000101
  10. WELLBUTRIN [Concomitant]
     Active Substance: BUPROPION HYDROCHLORIDE
     Dates: start: 19000101

REACTIONS (1)
  - Hip arthroplasty [None]
